FAERS Safety Report 6320828-0 (Version None)
Quarter: 2009Q3

REPORT INFORMATION
  Report Type: 
  Country: None (occurrence: None)
  Receive Date: 20090822
  Receipt Date: 20081210
  Transmission Date: 20100115
  Serious: No
  Sender: FDA-Public Use
  Company Number: US-ABBOTT-08P-163-0492427-00

PATIENT
  Sex: Male
  Weight: 108.96 kg

DRUGS (17)
  1. NIASPAN [Suspect]
     Indication: BLOOD CHOLESTEROL INCREASED
     Dates: start: 20081120
  2. MONTELUKAST SODIUM [Concomitant]
     Indication: ASTHMA
     Route: 048
  3. MIACALCIN [Concomitant]
     Indication: OSTEOPOROSIS
     Dosage: 1 SPRAY
     Route: 045
  4. LANSOPRAZOLE [Concomitant]
     Indication: GASTRIC DISORDER
     Route: 048
  5. CYANOCOBALAMIN-TANNIN COMPLEX [Concomitant]
     Indication: ANAEMIA
     Route: 050
  6. IRBESARTAN [Concomitant]
     Indication: BLOOD PRESSURE
     Route: 048
  7. TEMAZEPAM [Concomitant]
     Indication: INSOMNIA
     Route: 048
  8. ANDROGENS [Concomitant]
     Indication: BLOOD TESTOSTERONE DECREASED
     Route: 048
  9. GLYCERYL TRINITRATE [Concomitant]
     Indication: CHEST PAIN
  10. CLINDAMYCIN [Concomitant]
     Indication: DENTAL OPERATION
     Dosage: 300 MG BEFORE DENTAL WORK
     Route: 048
  11. ROSUVASTATIN [Concomitant]
     Indication: BLOOD CHOLESTEROL INCREASED
     Route: 048
  12. TOPIRAMATE [Concomitant]
     Indication: TREMOR
     Route: 048
  13. TIOTROPIUM BROMIDE [Concomitant]
     Indication: ASTHMA
     Dosage: 18 MCG  1 PILL INHALED
     Route: 055
  14. METOPROLOL SUCCINATE [Concomitant]
     Indication: BLOOD PRESSURE
     Dosage: 200 MG QD
     Route: 048
  15. PYRIDOXINE HYDROCHLORIDE [Concomitant]
     Indication: DRUG USE FOR UNKNOWN INDICATION
     Route: 048
  16. DIPHENHYDRAMINE HYDROCHLORIDE [Concomitant]
     Indication: PRURITUS
     Route: 048
  17. DOXYCYCLINE [Concomitant]
     Indication: STAPHYLOCOCCAL INFECTION
     Route: 048

REACTIONS (2)
  - FLUSHING [None]
  - SKIN BURNING SENSATION [None]
